FAERS Safety Report 11788929 (Version 1)
Quarter: 2015Q4

REPORT INFORMATION
  Report Type: Spontaneous
  Country: FR (occurrence: FR)
  Receive Date: 20151201
  Receipt Date: 20151201
  Transmission Date: 20160305
  Serious: Yes (Hospitalization, Other)
  Sender: FDA-Public Use
  Company Number: FR-WATSON-2015-18424

PATIENT
  Age: 9 Year
  Sex: Male
  Weight: 25 kg

DRUGS (2)
  1. BETAXOLOL. [Interacting]
     Active Substance: BETAXOLOL
     Indication: SOMATOTROPIN STIMULATION TEST
     Dosage: 6.2 MG, TOTAL
     Route: 048
  2. CLONIDINE. [Suspect]
     Active Substance: CLONIDINE
     Indication: SOMATOTROPIN STIMULATION TEST
     Dosage: 0.23 MG, TOTAL
     Route: 048

REACTIONS (7)
  - Hypotension [Recovered/Resolved]
  - Electrocardiogram ST segment depression [Unknown]
  - Somnolence [Recovered/Resolved]
  - Bundle branch block right [Unknown]
  - Bradycardia [Recovered/Resolved]
  - Accidental overdose [Recovered/Resolved]
  - Drug interaction [Recovered/Resolved]
